FAERS Safety Report 5723895-8 (Version None)
Quarter: 2008Q2

REPORT INFORMATION
  Report Type: 
  Country: None (occurrence: None)
  Receive Date: 20080430
  Receipt Date: 20080422
  Transmission Date: 20081010
  Serious: Yes (Hospitalization, Other)
  Sender: FDA-Public Use
  Company Number: GB-ASTRAZENECA-2008AC01027

PATIENT
  Age: 50 Year
  Sex: Male

DRUGS (6)
  1. OMEPRAZOLE [Suspect]
     Route: 065
  2. PHENYTOIN [Interacting]
  3. INSULIN [Concomitant]
  4. VITAMIN B COMPLEX CAP [Concomitant]
  5. ATORVASTATIN [Concomitant]
  6. SPIRONOLACTONE [Concomitant]

REACTIONS (9)
  - ANAEMIA MACROCYTIC [None]
  - CEREBELLAR SYNDROME [None]
  - DRUG INTERACTION [None]
  - DYSARTHRIA [None]
  - GAIT DISTURBANCE [None]
  - GRAND MAL CONVULSION [None]
  - LIVER FUNCTION TEST ABNORMAL [None]
  - NYSTAGMUS [None]
  - THROMBOCYTHAEMIA [None]
